FAERS Safety Report 9158834 (Version 1)
Quarter: 2013Q1

REPORT INFORMATION
  Report Type: Spontaneous
  Country: US (occurrence: US)
  Receive Date: 20130313
  Receipt Date: 20130313
  Transmission Date: 20140127
  Serious: Yes (Other)
  Sender: FDA-Public Use
  Company Number: US-AMGEN-USASP2013016570

PATIENT
  Age: 62 Year
  Sex: Female
  Weight: 40.82 kg

DRUGS (10)
  1. ENBREL [Suspect]
     Indication: RHEUMATOID ARTHRITIS
     Dosage: 50 MG, QWK
     Route: 058
  2. FOSAMAX [Concomitant]
     Dosage: 5 MG, UNK
  3. PREDNISONE [Concomitant]
     Dosage: 1 MG, UNK
  4. SYNTHROID [Concomitant]
     Dosage: 100 MUG, UNK
  5. TRAZODONE [Concomitant]
     Dosage: 50 MG, UNK
  6. FOLIC ACID [Concomitant]
     Dosage: 1 MG, UNK
  7. VITAMIN D /00107901/ [Concomitant]
     Dosage: 1000 UNIT, UNK
  8. CALCIUM [Concomitant]
     Dosage: 500 UNK, UNK
  9. METHOTREXATE [Concomitant]
     Dosage: 20 MG, UNK
  10. HYDROCODONE/ACETAMINOPHEN          /00607101/ [Concomitant]
     Dosage: 5-325 MG, UNK

REACTIONS (7)
  - Pneumonia [Unknown]
  - Pleurisy [Unknown]
  - Infection [Unknown]
  - Rheumatoid arthritis [Unknown]
  - Rash macular [Unknown]
  - Dry skin [Unknown]
  - White blood cell disorder [Unknown]
